FAERS Safety Report 6268370-X (Version None)
Quarter: 2009Q3

REPORT INFORMATION
  Report Type: 
  Country: None (occurrence: None)
  Receive Date: 20090715
  Receipt Date: 20090707
  Transmission Date: 20100115
  Serious: Yes (Other)
  Sender: FDA-Public Use
  Company Number: PL-JNJFOC-20090702611

PATIENT

DRUGS (1)
  1. REMICADE [Suspect]
     Indication: DRUG USE FOR UNKNOWN INDICATION
     Dosage: 6 INFUSIONS ON UNSPECIFIED DATES
     Route: 042

REACTIONS (1)
  - PERONEAL NERVE PALSY [None]
